FAERS Safety Report 4533846-X (Version None)
Quarter: 2004Q4

REPORT INFORMATION
  Report Type: 
  Country: None (occurrence: None)
  Receive Date: 20041214
  Receipt Date: 20041011
  Transmission Date: 20050328
  Serious: No
  Sender: FDA-Public Use
  Company Number: USA041080759

PATIENT
  Age: 72 Year
  Sex: Male
  Weight: 136 kg

DRUGS (8)
  1. CIALIS [Suspect]
     Dosage: 10 MG/1
     Dates: start: 20040927
  2. NAPROXEN SODIUM [Concomitant]
  3. WELLBUTRIN SR [Concomitant]
  4. LIPITOR [Concomitant]
  5. LISINOPRIL AND HYDROCHLOROTHIAZIDE [Concomitant]
  6. NADOLOL [Concomitant]
  7. MULTI-VITAMIN [Concomitant]
  8. ASPIRN (ACETYLSALICYLIC ACID) [Concomitant]

REACTIONS (1)
  - THERAPEUTIC RESPONSE DECREASED [None]
